FAERS Safety Report 9016420 (Version 1)
Quarter: 2013Q1

REPORT INFORMATION
  Report Type: Spontaneous
  Country: US (occurrence: US)
  Receive Date: 20130116
  Receipt Date: 20130116
  Transmission Date: 20140127
  Serious: Yes (Other)
  Sender: FDA-Public Use
  Company Number: US-GLAXOSMITHKLINE-A1008436A

PATIENT
  Age: 64 Year
  Sex: Male
  Weight: 68.2 kg

DRUGS (6)
  1. VOTRIENT [Suspect]
     Indication: PRODUCT USED FOR UNKNOWN INDICATION
     Dosage: 200MG SEE DOSAGE TEXT
     Route: 048
  2. FLUCONAZOLE [Concomitant]
  3. SYNTHROID [Concomitant]
  4. VITAMIN B COMPOUND [Concomitant]
  5. MEGACE [Concomitant]
  6. MOTRIN IB [Concomitant]

REACTIONS (4)
  - Candida infection [Unknown]
  - Neuropathy peripheral [Unknown]
  - Diarrhoea [Unknown]
  - Weight decreased [Unknown]
